FAERS Safety Report 8314287-6 (Version None)
Quarter: 2012Q2

REPORT INFORMATION
  Report Type: 
  Country: None (occurrence: None)
  Receive Date: 20120426
  Receipt Date: 20120423
  Transmission Date: 20120825
  Serious: Yes (Other)
  Sender: FDA-Public Use
  Company Number: JP-PFIZER INC-2012096638

PATIENT
  Age: 64 Year
  Sex: Female

DRUGS (6)
  1. CADUET [Suspect]
     Indication: HYPERTENSION
     Dosage: UNK
     Route: 048
     Dates: start: 20120312, end: 20120418
  2. ADALAT [Concomitant]
     Dosage: UNK
     Dates: end: 20120312
  3. CADUET [Suspect]
     Indication: HYPERLIPIDAEMIA
  4. MEILAX [Concomitant]
     Dosage: UNK
  5. CRESTOR [Concomitant]
     Dosage: UNK
     Dates: end: 20120312
  6. BISOPROLOL FUMARATE [Concomitant]
     Dosage: UNK

REACTIONS (2)
  - BONE MARROW FAILURE [None]
  - SJOGREN'S SYNDROME [None]
